FAERS Safety Report 4589247-1 (Version None)
Quarter: 2005Q1

REPORT INFORMATION
  Report Type: 
  Country: None (occurrence: None)
  Receive Date: 20050216
  Receipt Date: 20050207
  Transmission Date: 20050727
  Serious: Yes (Disabling)
  Sender: FDA-Public Use
  Company Number: HQWYE481116NOV04

PATIENT
  Age: 57 Year
  Sex: Male
  Weight: 70.37 kg

DRUGS (8)
  1. EFFEXOR XR [Suspect]
     Indication: DEPRESSION
     Dosage: SEE IMAGE
     Route: 048
     Dates: start: 20031201, end: 20041102
  2. EFFEXOR XR [Suspect]
     Indication: DEPRESSION
     Dosage: SEE IMAGE
     Route: 048
     Dates: start: 20041201, end: 20041201
  3. EFFEXOR XR [Suspect]
     Indication: DEPRESSION
     Dosage: SEE IMAGE
     Route: 048
     Dates: start: 20041204, end: 20041201
  4. EFFEXOR XR [Suspect]
     Indication: DEPRESSION
     Dosage: SEE IMAGE
     Route: 048
     Dates: start: 20041115, end: 20041203
  5. EFFEXOR XR [Suspect]
     Indication: DEPRESSION
     Dosage: SEE IMAGE
     Route: 048
     Dates: start: 20050102
  6. CARDURA [Concomitant]
  7. PROSCAR [Concomitant]
  8. ANAPROX [Concomitant]

REACTIONS (10)
  - ACTIVITIES OF DAILY LIVING IMPAIRED [None]
  - ANXIETY [None]
  - DRUG WITHDRAWAL SYNDROME [None]
  - FACTITIOUS DISORDER [None]
  - LOSS OF LIBIDO [None]
  - MUSCLE TIGHTNESS [None]
  - NIGHT SWEATS [None]
  - NIGHTMARE [None]
  - TENSION [None]
  - TREMOR [None]
